FAERS Safety Report 9124835 (Version 2)
Quarter: 2013Q2

REPORT INFORMATION
  Report Type: Spontaneous
  Country: DE (occurrence: DE)
  Receive Date: 20130227
  Receipt Date: 20130502
  Transmission Date: 20140414
  Serious: Yes (Hospitalization)
  Sender: FDA-Public Use
  Company Number: DE-ROCHE-1180885

PATIENT
  Age: 61 Year
  Sex: Female
  Weight: 104 kg

DRUGS (9)
  1. HERCEPTIN [Suspect]
     Indication: BREAST CANCER METASTATIC
     Route: 001
     Dates: start: 2010, end: 2011
  2. HERCEPTIN [Suspect]
     Dosage: OVER 90 MINUTES
     Route: 042
     Dates: start: 20130114, end: 20130430
  3. HERCEPTIN [Suspect]
     Dosage: REINTORDUCED DOSE IN UNCERTAIN
     Route: 065
  4. MCP [Concomitant]
     Indication: BREAST CANCER METASTATIC
     Dosage: 2-4 EVERY DAY
     Route: 048
     Dates: start: 20130115
  5. FORTECORTIN (GERMANY) [Concomitant]
     Route: 048
     Dates: start: 20130114
  6. XGEVA [Concomitant]
     Route: 058
     Dates: start: 20130114
  7. TAXOTERE [Concomitant]
     Indication: BREAST CANCER METASTATIC
     Route: 065
     Dates: start: 20130114
  8. DEXAMETHASON [Concomitant]
     Route: 048
     Dates: start: 20130115
  9. DEXAMETHASON [Concomitant]
     Route: 042
     Dates: start: 20130115

REACTIONS (4)
  - Wrong technique in drug usage process [Unknown]
  - Erythema [Recovering/Resolving]
  - Pancytopenia [Unknown]
  - Dermatitis [Recovering/Resolving]
